FAERS Safety Report 6635958-3 (Version None)
Quarter: 2010Q1

REPORT INFORMATION
  Report Type: 
  Country: None (occurrence: None)
  Receive Date: 20100316
  Receipt Date: 20100308
  Transmission Date: 20100710
  Serious: Yes (Hospitalization)
  Sender: FDA-Public Use
  Company Number: CA-BRISTOL-MYERS SQUIBB COMPANY-15008980

PATIENT
  Age: 78 Year
  Sex: Male

DRUGS (2)
  1. ERBITUX [Suspect]
     Indication: LIP AND/OR ORAL CAVITY CANCER
     Route: 042
  2. RADIATION THERAPY [Suspect]
     Indication: LIP AND/OR ORAL CAVITY CANCER

REACTIONS (2)
  - DUODENAL PERFORATION [None]
  - GASTROINTESTINAL HAEMORRHAGE [None]
